FAERS Safety Report 11320188 (Version 4)
Quarter: 2016Q1

REPORT INFORMATION
  Report Type: Spontaneous
  Country: TR (occurrence: TR)
  Receive Date: 20150729
  Receipt Date: 20160211
  Transmission Date: 20160525
  Serious: Yes (Hospitalization)
  Sender: FDA-Public Use
  Company Number: TR-SUN PHARMACEUTICAL INDUSTRIES LTD-2015RR-100886

PATIENT

DRUGS (1)
  1. RISPERIDONE. [Suspect]
     Active Substance: RISPERIDONE
     Indication: BRIEF PSYCHOTIC DISORDER, WITH POSTPARTUM ONSET
     Dosage: 2 MG, DAILY
     Route: 065

REACTIONS (7)
  - Confusional state [Unknown]
  - Pyrexia [Unknown]
  - Blood creatine phosphokinase increased [Unknown]
  - Encephalitis autoimmune [Unknown]
  - Cogwheel rigidity [Unknown]
  - Drug ineffective [Unknown]
  - Leukocytosis [Unknown]
